FAERS Safety Report 21974506 (Version 4)
Quarter: 2024Q2

REPORT INFORMATION
  Report Type: Spontaneous
  Country: JP (occurrence: JP)
  Receive Date: 20230209
  Receipt Date: 20240627
  Transmission Date: 20240715
  Serious: Yes (Hospitalization)
  Sender: FDA-Public Use
  Company Number: JP-TEVA-2023-JP-2851998

PATIENT
  Age: 15 Year
  Sex: Female

DRUGS (7)
  1. MODAFINIL [Suspect]
     Active Substance: MODAFINIL
     Indication: Narcolepsy
     Route: 048
     Dates: start: 201711, end: 201808
  2. ABILIFY [Concomitant]
     Active Substance: ARIPIPRAZOLE
     Indication: Product used for unknown indication
     Dosage: DOSAGE TEXT: DRUG WITHDRAWN
     Route: 065
     Dates: start: 201808, end: 2018
  3. ABILIFY [Concomitant]
     Active Substance: ARIPIPRAZOLE
     Indication: Product used for unknown indication
     Dosage: DOSAGE TEXT: DRUG WITHDRAWN
     Route: 065
     Dates: start: 2018, end: 2018
  4. ABILIFY [Concomitant]
     Active Substance: ARIPIPRAZOLE
     Indication: Product used for unknown indication
     Dosage: DOSAGE TEXT: DRUG WITHDRAWN
     Route: 065
     Dates: start: 2018, end: 2018
  5. ABILIFY [Concomitant]
     Active Substance: ARIPIPRAZOLE
     Indication: Product used for unknown indication
     Dosage: DOSAGE TEXT: DRUG WITHDRAWN
     Route: 065
     Dates: start: 2018, end: 2018
  6. ABILIFY [Concomitant]
     Active Substance: ARIPIPRAZOLE
     Indication: Product used for unknown indication
     Dosage: DOSAGE TEXT: DRUG WITHDRAWN
     Route: 065
     Dates: start: 2018, end: 20180926
  7. QUETIAPINE [Concomitant]
     Active Substance: QUETIAPINE
     Indication: Product used for unknown indication
     Dosage: DOSAGE TEXT: DRUG WITHDRAWN
     Route: 065
     Dates: end: 20180926

REACTIONS (3)
  - Hallucination, auditory [Recovering/Resolving]
  - Persecutory delusion [Recovering/Resolving]
  - Thought broadcasting [Recovering/Resolving]

NARRATIVE: CASE EVENT DATE: 20180801
